FAERS Safety Report 21325070 (Version 1)
Quarter: 2022Q3

REPORT INFORMATION
  Report Type: Spontaneous
  Country: GR (occurrence: GR)
  Receive Date: 20220912
  Receipt Date: 20220912
  Transmission Date: 20221026
  Serious: Yes (Life-Threatening)
  Sender: FDA-Public Use
  Company Number: None

PATIENT
  Age: 70 Year
  Sex: Male

DRUGS (1)
  1. OXALIPLATIN [Suspect]
     Active Substance: OXALIPLATIN
     Dosage: 260 MG, CYCLIC  Q3 WEEKS
     Route: 042

REACTIONS (2)
  - Dyspnoea [Recovered/Resolved]
  - Laryngospasm [Recovered/Resolved]
